FAERS Safety Report 8022324-1 (Version None)
Quarter: 2012Q1

REPORT INFORMATION
  Report Type: 
  Country: None (occurrence: None)
  Receive Date: 20120104
  Receipt Date: 20110104
  Transmission Date: 20120608
  Serious: No
  Sender: FDA-Public Use
  Company Number: US-MYLANLABS-2011S1000303

PATIENT
  Sex: Female

DRUGS (3)
  1. KETOPROFEN [Suspect]
     Indication: ARTHRITIS
     Route: 048
     Dates: start: 20101122
  2. LISINOPRIL [Concomitant]
     Indication: BLOOD PRESSURE
  3. CYMBALTA [Concomitant]
     Indication: DEPRESSION
     Dates: start: 20101201

REACTIONS (2)
  - REACTION TO DRUG EXCIPIENTS [None]
  - PRURITUS [None]
